FAERS Safety Report 25135115 (Version 1)
Quarter: 2025Q1

REPORT INFORMATION
  Report Type: Report from Study
  Country: US (occurrence: US)
  Receive Date: 20250328
  Receipt Date: 20250328
  Transmission Date: 20250409
  Serious: Yes (Other)
  Sender: TAKEDA
  Company Number: US-TAKEDA-2022TUS024955

PATIENT
  Age: 20 Year
  Sex: Female

DRUGS (9)
  1. LANADELUMAB [Suspect]
     Active Substance: LANADELUMAB
     Indication: Immune system disorder
     Dosage: 300 MILLIGRAM, Q4WEEKS
     Dates: start: 201806, end: 202204
  2. LANADELUMAB [Suspect]
     Active Substance: LANADELUMAB
     Indication: Swelling
     Dosage: 300 MILLIGRAM, Q4WEEKS
     Dates: start: 20190103
  3. LANADELUMAB [Suspect]
     Active Substance: LANADELUMAB
     Dosage: 300 MILLIGRAM, Q4WEEKS
     Dates: start: 201901
  4. LANADELUMAB [Suspect]
     Active Substance: LANADELUMAB
     Dosage: 300 MILLIGRAM, Q4WEEKS
     Dates: start: 201906
  5. LANADELUMAB [Suspect]
     Active Substance: LANADELUMAB
     Dosage: 300 MILLIGRAM, Q2WEEKS
  6. LANADELUMAB [Suspect]
     Active Substance: LANADELUMAB
     Dosage: Q2WEEKS
  7. STERILE WATER [Concomitant]
     Active Substance: WATER
  8. EPINEPHRINE [Concomitant]
     Active Substance: EPINEPHRINE
  9. RUCONEST [Concomitant]
     Active Substance: CONESTAT ALFA
     Indication: Swelling

REACTIONS (8)
  - Nephrotic syndrome [Unknown]
  - Urinary tract infection [Unknown]
  - Weight decreased [Unknown]
  - Exposure during pregnancy [Unknown]
  - Weight increased [Unknown]
  - Product dose omission issue [Unknown]
  - Product use issue [Unknown]
  - Hereditary angioedema [Recovered/Resolved]

NARRATIVE: CASE EVENT DATE: 20221222
